FAERS Safety Report 25943221 (Version 1)
Quarter: 2025Q4

REPORT INFORMATION
  Report Type: Spontaneous
  Country: US (occurrence: None)
  Receive Date: 20251020
  Receipt Date: 20251020
  Transmission Date: 20260118
  Serious: Yes (unspecified)
  Sender: FDA-CTU
  Company Number: None

PATIENT
  Age: 69 Year
  Sex: Female
  Weight: 82.7 kg

DRUGS (2)
  1. RITUXIMAB [Suspect]
     Active Substance: RITUXIMAB
     Indication: Nodular lymphocyte predominant Hodgkin lymphoma
     Dosage: 700 MG ONCE INTRAVENOUS
     Route: 042
     Dates: start: 20251016
  2. SODIUM CHLORIDE [Suspect]
     Active Substance: SODIUM CHLORIDE
     Dosage: 630 ML ONCE INTRVENOUS
     Route: 042

REACTIONS (4)
  - Feeling cold [None]
  - Chills [None]
  - Headache [None]
  - Pyrexia [None]

NARRATIVE: CASE EVENT DATE: 20251016
